FAERS Safety Report 20654198 (Version 1)
Quarter: 2022Q1

REPORT INFORMATION
  Report Type: Spontaneous
  Country: GB (occurrence: GB)
  Receive Date: 20220330
  Receipt Date: 20220330
  Transmission Date: 20220423
  Serious: Yes (Other)
  Sender: FDA-Public Use
  Company Number: None

PATIENT
  Age: 74 Year
  Sex: Male
  Weight: 103 kg

DRUGS (12)
  1. EMPAGLIFLOZIN [Suspect]
     Active Substance: EMPAGLIFLOZIN
     Indication: Product used for unknown indication
     Dosage: (AMBER 3- AS PER NOTTINGHAMSHIRES APC DIABETES ...
     Dates: start: 20211011, end: 20220323
  2. APIDRA [Concomitant]
     Active Substance: INSULIN GLULISINE
     Indication: Product used for unknown indication
     Dosage: INJECT THE APPROPRIATE NUMBER OF UNITS AS INSTR...
     Dates: start: 20211130
  3. BECLOMETHASONE DIPROPIONATE [Concomitant]
     Active Substance: BECLOMETHASONE DIPROPIONATE
     Indication: Product used for unknown indication
     Route: 055
     Dates: start: 20211108
  4. LANTUS [Concomitant]
     Active Substance: INSULIN GLARGINE
     Indication: Product used for unknown indication
     Dosage: AS DIRECTED
     Dates: start: 20211130
  5. ZEMTARD MR [Concomitant]
     Indication: Product used for unknown indication
     Dosage: (24HOUR DILTIAZEM)
     Dates: start: 20211011
  6. ASPIRIN [Concomitant]
     Active Substance: ASPIRIN
     Dates: start: 20211011
  7. DOXAZOSIN [Concomitant]
     Active Substance: DOXAZOSIN MESYLATE
     Dates: start: 20211011
  8. LINAGLIPTIN [Concomitant]
     Active Substance: LINAGLIPTIN
     Dates: start: 20211011
  9. LOSARTAN [Concomitant]
     Active Substance: LOSARTAN
     Dates: start: 20211206
  10. METFORMIN [Concomitant]
     Active Substance: METFORMIN HYDROCHLORIDE
     Indication: Product used for unknown indication
     Dosage: TAKE TWO TWICE A DAY
     Dates: start: 20211206
  11. ALBUTEROL [Concomitant]
     Active Substance: ALBUTEROL
     Indication: Product used for unknown indication
     Dosage: WHEN REQUIRED
     Route: 055
     Dates: start: 20211108
  12. SIMVASTATIN [Concomitant]
     Active Substance: SIMVASTATIN
     Indication: Product used for unknown indication
     Dosage: NIIGHTLY
     Dates: start: 20211011

REACTIONS (1)
  - Hallucination, visual [Unknown]

NARRATIVE: CASE EVENT DATE: 20220323
